FAERS Safety Report 7122885-0 (Version None)
Quarter: 2010Q4

REPORT INFORMATION
  Report Type: 
  Country: None (occurrence: None)
  Receive Date: 20101124
  Receipt Date: 20101025
  Transmission Date: 20110411
  Serious: Yes (Death)
  Sender: FDA-Public Use
  Company Number: GB-AMGEN-GBRCT2010001712

PATIENT

DRUGS (8)
  1. ETANERCEPT [Suspect]
     Indication: RHEUMATOID ARTHRITIS
     Dosage: 25 MG, 2 TIMES/WK
     Dates: start: 20040914, end: 20050614
  2. METHOTREXATE [Concomitant]
     Dosage: UNKNOWN
  3. ALENDRONATE SODIUM [Concomitant]
     Dosage: UNKNOWN
  4. OMEPRAZOLE [Concomitant]
     Dosage: UNKNOWN
  5. ACETAMINOPHEN WITH PROPOXYPHENE HCL TAB [Concomitant]
     Dosage: UNKNOWN
  6. NITROGLYCERIN [Concomitant]
     Dosage: UNKNOWN
  7. ISOSORBIDE DINITRATE [Concomitant]
     Dosage: UNKNOWN
  8. ATENOLOL [Concomitant]
     Dosage: UNKNOWN

REACTIONS (1)
  - ARTERIOSCLEROSIS CORONARY ARTERY [None]
